FAERS Safety Report 8076682-2 (Version None)
Quarter: 2012Q1

REPORT INFORMATION
  Report Type: 
  Country: None (occurrence: None)
  Receive Date: 20120127
  Receipt Date: 20120119
  Transmission Date: 20120608
  Serious: Yes (Hospitalization)
  Sender: FDA-Public Use
  Company Number: US-AMGEN-USASP2012004093

PATIENT
  Age: 54 Year
  Sex: Male

DRUGS (1)
  1. ENBREL [Suspect]
     Indication: PALINDROMIC RHEUMATISM
     Dosage: 50 MG, QWK
     Dates: start: 20080801

REACTIONS (5)
  - HEARING IMPAIRED [None]
  - MENINGITIS [None]
  - SINUSITIS [None]
  - AUTOIMMUNE DISORDER [None]
  - EAR INFECTION [None]
